FAERS Safety Report 9601787 (Version 4)
Quarter: 2013Q4

REPORT INFORMATION
  Report Type: Spontaneous
  Country: IT (occurrence: None)
  Receive Date: 20131002
  Receipt Date: 20131129
  Transmission Date: 20140711
  Serious: Yes (Hospitalization)
  Sender: FDA-Public Use
  Company Number: AUR-APL-2013-08073

PATIENT
  Age: 50 Year
  Sex: Male

DRUGS (4)
  1. PAROXETINE [Suspect]
     Indication: DEPRESSION
     Dosage: (20 MG, (TOTAL), ORAL
     Route: 048
     Dates: start: 20130909, end: 20130909
  2. TAVOR (LORAZEPAM) [Suspect]
     Indication: PRODUCT USED FOR UNKNOWN INDICATION
     Dosage: (15 MG, TOTAL), ORAL
     Route: 048
     Dates: start: 20130909, end: 20130909
  3. REMERON [Suspect]
     Indication: DEPRESSION
     Dosage: 30 MG, TOTAL, ORAL
     Route: 048
     Dates: start: 20130909, end: 20130909
  4. SEROQUEL (QUETIAPINE FUMARATE) [Suspect]
     Indication: PRODUCT USED FOR UNKNOWN INDICATION
     Dosage: 800 MG, TOTAL, ORAL
     Route: 048
     Dates: start: 20130909, end: 20130909

REACTIONS (8)
  - Depression [None]
  - Asthenia [None]
  - Insomnia [None]
  - Suicide attempt [None]
  - Drug abuse [None]
  - Mood altered [None]
  - Overdose [None]
  - Insomnia [None]
